FAERS Safety Report 4706769-0 (Version None)
Quarter: 2005Q2

REPORT INFORMATION
  Report Type: 
  Country: None (occurrence: None)
  Receive Date: 20050629
  Receipt Date: 20050301
  Transmission Date: 20051028
  Serious: No
  Sender: FDA-Public Use
  Company Number: 05P-163-0292490-00

PATIENT
  Age: 42 Year
  Sex: Female
  Weight: 97.0698 kg

DRUGS (7)
  1. HUMIRA [Suspect]
     Indication: RHEUMATOID ARTHRITIS
     Dosage: 40 MG, 1 IN 2 WK, SUBCUTANEOUS
     Route: 058
     Dates: start: 20041101
  2. METHOTREXATE [Concomitant]
  3. RISEDRONATE SODIUM [Concomitant]
  4. FOLIC ACID [Concomitant]
  5. SERTRALINE HYDROCHLORIDE [Concomitant]
  6. CLONAZEPAM [Concomitant]
  7. TRAZODONE [Concomitant]

REACTIONS (2)
  - DRY SKIN [None]
  - PRURITUS [None]
